FAERS Safety Report 9049379 (Version 1)
Quarter: 2013Q1

REPORT INFORMATION
  Report Type: Spontaneous
  Country: ID (occurrence: ID)
  Receive Date: 20130205
  Receipt Date: 20130205
  Transmission Date: 20140127
  Serious: Yes (Death, Other)
  Sender: FDA-Public Use
  Company Number: ID-WATSON-2013-01335

PATIENT
  Age: 42 Year
  Sex: Male

DRUGS (5)
  1. PREDNISOLONE (UNKNOWN) [Suspect]
     Indication: LYMPHOMA
     Dosage: 3 CYCLES OF CHOP REGIMEN EVERY 3 WEEKS; THEN A 4TH CYCLE OF R-CHOP REGIMEN.
     Route: 065
  2. DOXORUBICIN [Suspect]
     Indication: LYMPHOMA
     Dosage: 3 CYCLES OF CHOP REGIMEN EVERY 3 WEEKS; THEN A 4TH CYCLE OF R-CHOP REGIMEN.
     Route: 065
  3. VINCRISTINE [Suspect]
     Indication: LYMPHOMA
     Dosage: 3 CYCLES OF CHOP REGIMEN EVERY 3 WEEKS; THEN A  4TH CYCLE OF  R-CHOP REGIMEN
     Route: 065
  4. CYCLOPHOSPHAMIDE [Suspect]
     Indication: LYMPHOMA
     Dosage: 3 CYCLES OF CHOP REGIMEN EVERY 3 WEEKS; THEN A  4TH CYCLE OF  R-CHOP REGIMEN.
     Route: 065
  5. RITUXIMAB [Suspect]
     Indication: LYMPHOMA
     Dosage: UNK, UNKNOWN1 CYCLE OF  R-CHOP REGIMEN
     Route: 065

REACTIONS (5)
  - Acute hepatic failure [Fatal]
  - Hepatitis B [Fatal]
  - Hepatic encephalopathy [Fatal]
  - Stress ulcer [Unknown]
  - Haematemesis [Unknown]
